FAERS Safety Report 7920097-1 (Version None)
Quarter: 2011Q4

REPORT INFORMATION
  Report Type: 
  Country: None (occurrence: None)
  Receive Date: 20111117
  Receipt Date: 20111102
  Transmission Date: 20120403
  Serious: Yes (Hospitalization, Other)
  Sender: FDA-Public Use
  Company Number: US-ROCHE-1010907

PATIENT
  Sex: Male

DRUGS (15)
  1. TACROLIMUS [Suspect]
     Indication: LIVER TRANSPLANT
     Route: 048
     Dates: start: 20030705
  2. CELEXA [Concomitant]
  3. MYCOPHENOLATE MOFETIL (CELLCEPT) [Suspect]
     Indication: PRODUCT USED FOR UNKNOWN INDICATION
  4. PRILOSEC [Concomitant]
  5. PRINIVIL [Concomitant]
  6. PREVACID [Concomitant]
  7. ASPIRIN [Concomitant]
  8. ULTRAM [Concomitant]
  9. TRAZODONE HCL [Concomitant]
  10. ZYPREXA [Concomitant]
  11. PROPRANOLOL [Concomitant]
  12. SPIRONOLACTONE [Concomitant]
  13. COLCHICINE [Concomitant]
  14. BACTRIM [Concomitant]
  15. ALLOPURINOL [Concomitant]

REACTIONS (45)
  - OSTEONECROSIS [None]
  - INJURY [None]
  - ANKLE FRACTURE [None]
  - DIABETIC NEUROPATHY [None]
  - GASTROOESOPHAGEAL REFLUX DISEASE [None]
  - VARICELLA [None]
  - DIABETIC RETINOPATHY [None]
  - HYPERLIPIDAEMIA [None]
  - HEPATITIS B [None]
  - OSTEOMYELITIS [None]
  - BACK PAIN [None]
  - BACK INJURY [None]
  - BENIGN PROSTATIC HYPERPLASIA [None]
  - HEPATIC FIBROSIS [None]
  - HEAD INJURY [None]
  - MALAISE [None]
  - ABDOMINAL DISCOMFORT [None]
  - PNEUMONIA [None]
  - DEAFNESS [None]
  - HEPATITIS A [None]
  - OSTEOARTHRITIS [None]
  - RENAL FAILURE CHRONIC [None]
  - RETINAL VEIN OCCLUSION [None]
  - ROAD TRAFFIC ACCIDENT [None]
  - MULTIPLE FRACTURES [None]
  - DIABETIC NEPHROPATHY [None]
  - MANIA [None]
  - FALL [None]
  - NAUSEA [None]
  - MICROALBUMINURIA [None]
  - INSOMNIA [None]
  - CEREBROVASCULAR ACCIDENT [None]
  - PNEUMOTHORAX [None]
  - POST-TRAUMATIC STRESS DISORDER [None]
  - TEMPERATURE INTOLERANCE [None]
  - TYPE 2 DIABETES MELLITUS [None]
  - PLEURAL EFFUSION [None]
  - ROTATOR CUFF SYNDROME [None]
  - PORTAL HYPERTENSION [None]
  - SPLENOMEGALY [None]
  - BIPOLAR DISORDER [None]
  - SEXUAL DYSFUNCTION [None]
  - PROTEINURIA [None]
  - HYPERTENSION [None]
  - PAIN IN EXTREMITY [None]
